FAERS Safety Report 25008993 (Version 1)
Quarter: 2025Q1

REPORT INFORMATION
  Report Type: Spontaneous
  Country: US (occurrence: None)
  Receive Date: 20250224
  Receipt Date: 20250224
  Transmission Date: 20250409
  Serious: Yes (Death)
  Sender: FDA-CTU
  Company Number: None

PATIENT
  Age: 43 Year
  Sex: Female

DRUGS (1)
  1. ENOXAPARIN [Suspect]
     Active Substance: ENOXAPARIN

REACTIONS (5)
  - Cerebral haemorrhage [None]
  - Hypertension [None]
  - Tachycardia [None]
  - General physical health deterioration [None]
  - Brain death [None]

NARRATIVE: CASE EVENT DATE: 20231108
